FAERS Safety Report 18842194 (Version 1)
Quarter: 2021Q1

REPORT INFORMATION
  Report Type: Spontaneous
  Country: GB (occurrence: GB)
  Receive Date: 20210203
  Receipt Date: 20210203
  Transmission Date: 20210419
  Serious: Yes (Other)
  Sender: FDA-Public Use
  Company Number: GB-MYLANLABS-2021M1003716

PATIENT
  Age: 50 Year
  Sex: Male
  Weight: 76.2 kg

DRUGS (6)
  1. AZITHROMYCINE [Concomitant]
     Active Substance: AZITHROMYCIN
     Indication: ILL-DEFINED DISORDER
     Dosage: UNK
  2. CITALOPRAM [Suspect]
     Active Substance: CITALOPRAM HYDROBROMIDE
     Indication: DEPRESSION
  3. CITALOPRAM [Suspect]
     Active Substance: CITALOPRAM HYDROBROMIDE
     Indication: ANXIETY
  4. KALYDECO [Concomitant]
     Active Substance: IVACAFTOR
     Indication: ILL-DEFINED DISORDER
     Dosage: UNK
  5. CITALOPRAM [Suspect]
     Active Substance: CITALOPRAM HYDROBROMIDE
     Indication: ILL-DEFINED DISORDER
     Dosage: 20 MILLIGRAM
     Route: 048
     Dates: start: 20200131
  6. ZOPICLON [Concomitant]
     Active Substance: ZOPICLONE
     Indication: ILL-DEFINED DISORDER
     Dosage: UNK

REACTIONS (9)
  - Confusional state [Recovering/Resolving]
  - Night sweats [Not Recovered/Not Resolved]
  - Decreased appetite [Recovering/Resolving]
  - Nausea [Recovering/Resolving]
  - Disturbance in attention [Recovering/Resolving]
  - Depression [Recovering/Resolving]
  - Anxiety [Recovering/Resolving]
  - Agitation [Recovering/Resolving]
  - Sleep disorder [Not Recovered/Not Resolved]

NARRATIVE: CASE EVENT DATE: 20200131
